FAERS Safety Report 7611837-X (Version None)
Quarter: 2011Q3

REPORT INFORMATION
  Report Type: 
  Country: None (occurrence: None)
  Receive Date: 20110715
  Receipt Date: 20110705
  Transmission Date: 20111222
  Serious: Yes (Hospitalization)
  Sender: FDA-Public Use
  Company Number: RU-SANOFI-AVENTIS-2011SA043740

PATIENT
  Age: 71 Year
  Sex: Male
  Weight: 83 kg

DRUGS (6)
  1. ISOSORBIDE MONONITRATE [Concomitant]
     Dates: start: 20110118
  2. DRONEDARONE HCL [Suspect]
     Indication: ATRIAL FIBRILLATION
     Route: 048
     Dates: start: 20101216, end: 20101223
  3. ISOSORBIDE MONONITRATE [Concomitant]
     Dates: end: 20101225
  4. INDAPAMIDE [Concomitant]
  5. BISOPROLOL [Concomitant]
     Dates: end: 20101225
  6. ENALAPRIL MALEATE [Concomitant]

REACTIONS (1)
  - ISCHAEMIC STROKE [None]
